FAERS Safety Report 16344205 (Version 1)
Quarter: 2019Q2

REPORT INFORMATION
  Report Type: Spontaneous
  Country: US (occurrence: US)
  Receive Date: 20190522
  Receipt Date: 20190522
  Transmission Date: 20190711
  Serious: No
  Sender: FDA-Public Use
  Company Number: US-ANIPHARMA-2018-US-010412

PATIENT
  Age: 76 Year
  Sex: Female
  Weight: 57.15 kg

DRUGS (2)
  1. LITHIUM CARBONATE EXTENDED RELEASE TABLETS USP [Suspect]
     Active Substance: LITHIUM CARBONATE
     Indication: BIPOLAR DISORDER
     Dosage: 300 MG THREE TIMES A DAY
     Route: 048
     Dates: start: 1998
  2. LEXAPRO [Concomitant]
     Active Substance: ESCITALOPRAM OXALATE

REACTIONS (1)
  - Drug ineffective [Not Recovered/Not Resolved]

NARRATIVE: CASE EVENT DATE: 201805
